FAERS Safety Report 18227621 (Version 3)
Quarter: 2020Q4

REPORT INFORMATION
  Report Type: Report from Study
  Country: IL (occurrence: IL)
  Receive Date: 20200903
  Receipt Date: 20201220
  Transmission Date: 20210113
  Serious: Yes (Hospitalization, Other)
  Sender: FDA-Public Use
  Company Number: IL-JNJFOC-20200420087

PATIENT
  Age: 35 Year
  Sex: Female

DRUGS (3)
  1. SIMPONI [Suspect]
     Active Substance: GOLIMUMAB
     Indication: PSORIATIC ARTHROPATHY
     Route: 058
     Dates: start: 20200218
  2. SIMPONI [Suspect]
     Active Substance: GOLIMUMAB
  3. ANTIBIOTICS [Concomitant]
     Active Substance: UNSPECIFIED INGREDIENT

REACTIONS (8)
  - Ludwig angina [Recovered/Resolved]
  - Psoriatic arthropathy [Recovering/Resolving]
  - Vomiting [Recovered/Resolved]
  - Nausea [Not Recovered/Not Resolved]
  - Alanine aminotransferase increased [Recovering/Resolving]
  - Uveitis [Recovering/Resolving]
  - Retinal disorder [Not Recovered/Not Resolved]
  - Lyme disease [Recovered/Resolved]

NARRATIVE: CASE EVENT DATE: 2020
